FAERS Safety Report 21304905 (Version 2)
Quarter: 2022Q3

REPORT INFORMATION
  Report Type: Report from Study
  Country: US (occurrence: US)
  Receive Date: 20220907
  Receipt Date: 20220922
  Transmission Date: 20221026
  Serious: Yes (Hospitalization)
  Sender: FDA-Public Use
  Company Number: US-JNJFOC-20220901199

PATIENT
  Age: 57 Year
  Sex: Female
  Weight: 45.400 kg

DRUGS (2)
  1. SPRAVATO [Suspect]
     Active Substance: ESKETAMINE
     Indication: Depression
     Dosage: ^84 MG, 4 TOTAL DOSES^
     Dates: start: 20220725, end: 20220815
  2. SPRAVATO [Suspect]
     Active Substance: ESKETAMINE
     Dosage: ^84 MG, 1 TOTAL DOSE^, RECENT DOSE
     Dates: start: 20220829, end: 20220829

REACTIONS (4)
  - Suicidal ideation [Unknown]
  - Blood pressure increased [Unknown]
  - Dissociation [Unknown]
  - Sedation [Unknown]

NARRATIVE: CASE EVENT DATE: 20220829
